FAERS Safety Report 18004449 (Version 4)
Quarter: 2021Q3

REPORT INFORMATION
  Report Type: Report from Study
  Country: GB (occurrence: GB)
  Receive Date: 20200709
  Receipt Date: 20210804
  Transmission Date: 20211014
  Serious: Yes (Death, Hospitalization, Other)
  Sender: FDA-Public Use
  Company Number: GB-SAMSUNG BIOEPIS-SB-2020-17360

PATIENT
  Age: 65 Year
  Sex: Male
  Weight: 98.7 kg

DRUGS (1)
  1. BENEPALI [Suspect]
     Active Substance: ETANERCEPT
     Indication: PSORIASIS
     Route: 065
     Dates: start: 20170322, end: 20200409

REACTIONS (4)
  - Pancreatic neoplasm [Unknown]
  - Adenocarcinoma metastatic [Fatal]
  - Abdominal lymphadenopathy [Unknown]
  - Metastases to liver [Not Recovered/Not Resolved]

NARRATIVE: CASE EVENT DATE: 20200113
